FAERS Safety Report 20854693 (Version 1)
Quarter: 2022Q2

REPORT INFORMATION
  Report Type: Report from Study
  Country: US (occurrence: US)
  Receive Date: 20220520
  Receipt Date: 20220520
  Transmission Date: 20220720
  Serious: No
  Sender: FDA-Public Use
  Company Number: US-NOVARTISTESTPH-NVSC2022US116649

PATIENT
  Sex: Female

DRUGS (2)
  1. XIIDRA [Suspect]
     Active Substance: LIFITEGRAST
     Indication: Product used for unknown indication
     Dosage: 5 ML, BID
     Route: 047
     Dates: start: 20220218, end: 20220417
  2. ENTRESTO [Suspect]
     Active Substance: SACUBITRIL\VALSARTAN
     Indication: Product used for unknown indication
     Dosage: OTHER DOSAGE (24/26 MG) BID
     Route: 048
     Dates: start: 20220318, end: 20220519

REACTIONS (2)
  - Product complaint [Unknown]
  - Vision blurred [Unknown]
